FAERS Safety Report 25225838 (Version 4)
Quarter: 2025Q2

REPORT INFORMATION
  Report Type: Spontaneous
  Country: US (occurrence: US)
  Receive Date: 20250422
  Receipt Date: 20250526
  Transmission Date: 20250716
  Serious: Yes (Hospitalization, Other)
  Sender: SANOFI AVENTIS
  Company Number: US-SA-2025SA115181

PATIENT
  Age: 70 Year
  Sex: Female

DRUGS (3)
  1. PLAVIX [Suspect]
     Active Substance: CLOPIDOGREL BISULFATE
  2. FOSAMAX [Suspect]
     Active Substance: ALENDRONATE SODIUM
     Dosage: UNK UNK, QW
     Dates: end: 20250406
  3. ASPIRIN [Concomitant]
     Active Substance: ASPIRIN

REACTIONS (6)
  - Myocardial infarction [Unknown]
  - Fatigue [Unknown]
  - Haematochezia [Recovered/Resolved]
  - Mouth haemorrhage [Recovered/Resolved]
  - Condition aggravated [Recovering/Resolving]
  - Haemoglobin decreased [Unknown]

NARRATIVE: CASE EVENT DATE: 20250401
